FAERS Safety Report 9280946 (Version 2)
Quarter: 2013Q2

REPORT INFORMATION
  Report Type: Spontaneous
  Country: US (occurrence: US)
  Receive Date: 20130509
  Receipt Date: 20130619
  Transmission Date: 20140414
  Serious: No
  Sender: FDA-Public Use
  Company Number: US-009507513-1305USA003314

PATIENT
  Sex: Female
  Weight: 63.39 kg

DRUGS (4)
  1. ZOCOR [Suspect]
     Indication: BLOOD CHOLESTEROL INCREASED
     Dosage: 40 MG ONCE DAILY
     Route: 048
     Dates: end: 201210
  2. ZOCOR [Suspect]
     Indication: HYPERLIPIDAEMIA
  3. SYNTHROID [Concomitant]
  4. LOPRESSOR [Concomitant]

REACTIONS (3)
  - Muscle spasms [Recovering/Resolving]
  - Myalgia [Recovered/Resolved]
  - Wrong technique in drug usage process [Unknown]
